FAERS Safety Report 4853783-0 (Version None)
Quarter: 2005Q4

REPORT INFORMATION
  Report Type: 
  Country: None (occurrence: None)
  Receive Date: 20051214
  Receipt Date: 20040917
  Transmission Date: 20060501
  Serious: Yes (Hospitalization, Other)
  Sender: FDA-Public Use
  Company Number: NZ-ABBOTT-04P-118-0275065-00

PATIENT
  Age: 23 Year
  Sex: Female

DRUGS (1)
  1. REDUCTIL 10MG [Suspect]
     Indication: WEIGHT CONTROL
     Route: 048
     Dates: start: 20020921, end: 20021001

REACTIONS (2)
  - DRUG EXPOSURE DURING PREGNANCY [None]
  - ECTOPIC PREGNANCY [None]
